FAERS Safety Report 11637246 (Version 1)
Quarter: 2015Q4

REPORT INFORMATION
  Report Type: Spontaneous
  Country: US (occurrence: US)
  Receive Date: 20151016
  Receipt Date: 20151016
  Transmission Date: 20160304
  Serious: Yes (Other)
  Sender: FDA-Public Use
  Company Number: US-IPSEN BIOPHARMACEUTICALS, INC.-2015-7867

PATIENT
  Age: 25 Year
  Sex: Female

DRUGS (8)
  1. PREDNISONE. [Suspect]
     Active Substance: PREDNISONE
     Indication: COMPLEX REGIONAL PAIN SYNDROME
     Dosage: NOT REPORTED
     Route: 065
  2. GABAPENTIN. [Suspect]
     Active Substance: GABAPENTIN
     Indication: COMPLEX REGIONAL PAIN SYNDROME
     Dosage: NOT REPORTED
     Route: 065
  3. SYMPATHETIC BLOCKS [Suspect]
     Active Substance: UNSPECIFIED INGREDIENT
     Indication: COMPLEX REGIONAL PAIN SYNDROME
     Dosage: NOT REPORTED
     Route: 065
  4. OPIOIDS [Suspect]
     Active Substance: UNSPECIFIED INGREDIENT
     Indication: COMPLEX REGIONAL PAIN SYNDROME
     Dosage: NOT REPORTED
     Route: 065
  5. DAPSONE. [Suspect]
     Active Substance: DAPSONE
     Indication: COMPLEX REGIONAL PAIN SYNDROME
     Dosage: NOT REPORTED
     Route: 065
  6. BOTULINUM TOXIN TYPE A NOS [Suspect]
     Active Substance: BOTULINUM TOXIN TYPE A
     Indication: COMPLEX REGIONAL PAIN SYNDROME
     Dosage: NOT REPORTED
     Route: 065
  7. BOTULINUM TOXIN TYPE A NOS [Suspect]
     Active Substance: BOTULINUM TOXIN TYPE A
     Indication: PRODUCT USE ISSUE
  8. PENTOXIPHYLLINE [Suspect]
     Active Substance: PENTOXIFYLLINE
     Indication: COMPLEX REGIONAL PAIN SYNDROME
     Dosage: NOT REPORTED
     Route: 065

REACTIONS (5)
  - Intrathecal pump insertion [Unknown]
  - Post inflammatory pigmentation change [Not Recovered/Not Resolved]
  - Off label use [None]
  - Spinal cord abscess [Unknown]
  - Paraplegia [Not Recovered/Not Resolved]
